FAERS Safety Report 14917686 (Version 3)
Quarter: 2018Q2

REPORT INFORMATION
  Report Type: Report from Study
  Country: None (occurrence: CH)
  Receive Date: 20180521
  Receipt Date: 20180629
  Transmission Date: 20180711
  Serious: Yes (Other)
  Sender: FDA-Public Use
  Company Number: CH-ABBVIE-18K-151-2360176-00

PATIENT
  Age: 79 Year
  Sex: Female

DRUGS (5)
  1. DUODOPA [Suspect]
     Active Substance: CARBIDOPA\LEVODOPA
     Indication: PARKINSON^S DISEASE
     Route: 050
     Dates: start: 20160824, end: 20180413
  2. DUODOPA [Suspect]
     Active Substance: CARBIDOPA\LEVODOPA
     Dosage: MORNING DOSE 2.6ML?CONTINUOUS RATE 2.9M/H?EXTRA DOSE 0.9ML??16H THERAPY
     Route: 050
     Dates: start: 20180624
  3. DUODOPA [Suspect]
     Active Substance: CARBIDOPA\LEVODOPA
     Dosage: MORNING DOSE 5.8ML?CONTINUOUS RATE 2.9ML/H?EXTRA DOSE 0.8ML??16H THERAPY
     Route: 050
     Dates: start: 20180618, end: 20180624
  4. DUODOPA [Suspect]
     Active Substance: CARBIDOPA\LEVODOPA
     Dosage: MORNING DOSE 2.7ML?CONTINUOUS RATE 1.0ML/H?EXTRA DOSE 0.5ML??16H THERAPY
     Route: 050
     Dates: start: 20180415, end: 20180618
  5. DUODOPA [Suspect]
     Active Substance: CARBIDOPA\LEVODOPA
     Dosage: MORNING DOSE 3ML??CONTINUOUS RATE 1.2ML/H??EXTRA DOSE 0.5ML
     Route: 050
     Dates: start: 20180413, end: 20180415

REACTIONS (10)
  - Wrong dose [Recovered/Resolved]
  - Fall [Unknown]
  - Head injury [Unknown]
  - Freezing phenomenon [Unknown]
  - Confusional state [Not Recovered/Not Resolved]
  - Anxiety [Unknown]
  - Diet refusal [Recovering/Resolving]
  - Cerebral haemorrhage [Unknown]
  - Aggression [Recovering/Resolving]
  - Pain [Unknown]

NARRATIVE: CASE EVENT DATE: 2018
